FAERS Safety Report 8470511-0 (Version None)
Quarter: 2012Q2

REPORT INFORMATION
  Report Type: 
  Country: None (occurrence: None)
  Receive Date: 20120627
  Receipt Date: 20111007
  Transmission Date: 20120825
  Serious: No
  Sender: FDA-Public Use
  Company Number: US-MYLANLABS-2011S1021076

PATIENT
  Age: 89 Year
  Sex: Female
  Weight: 77.11 kg

DRUGS (3)
  1. ASPIRIN [Concomitant]
  2. PERFOROMIST [Suspect]
     Indication: DYSPNOEA
     Route: 055
     Dates: start: 20110101
  3. ALBUTEROL [Concomitant]
     Route: 055

REACTIONS (1)
  - COUGH [None]
